FAERS Safety Report 13656509 (Version 1)
Quarter: 2017Q2

REPORT INFORMATION
  Report Type: Spontaneous
  Country: US (occurrence: US)
  Receive Date: 20170615
  Receipt Date: 20170615
  Transmission Date: 20170830
  Serious: No
  Sender: FDA-Public Use
  Company Number: US-ELI_LILLY_AND_COMPANY-US201705007735

PATIENT
  Age: 13 Year
  Sex: Female

DRUGS (1)
  1. BASAGLAR [Suspect]
     Active Substance: INSULIN GLARGINE
     Indication: TYPE 1 DIABETES MELLITUS
     Dosage: 29 IU, UNKNOWN
     Route: 058

REACTIONS (4)
  - Pharyngitis streptococcal [Recovering/Resolving]
  - Injection site pain [Recovering/Resolving]
  - Blood glucose increased [Not Recovered/Not Resolved]
  - Injection site mass [Recovered/Resolved]
